FAERS Safety Report 4331355-4 (Version None)
Quarter: 2004Q1

REPORT INFORMATION
  Report Type: 
  Country: None (occurrence: None)
  Receive Date: 20040331
  Receipt Date: 20040318
  Transmission Date: 20041129
  Serious: Yes (Hospitalization)
  Sender: FDA-Public Use
  Company Number: 2004AP01290

PATIENT
  Age: 46 Year
  Sex: Male

DRUGS (12)
  1. IRESSA [Suspect]
     Indication: LUNG ADENOCARCINOMA
     Dosage: 250 MG DAILY PO
     Route: 048
     Dates: start: 20040209, end: 20040225
  2. CIBENOL [Concomitant]
  3. BROCIN-CODEINE [Concomitant]
  4. GASTER D [Concomitant]
  5. PREDONINE [Concomitant]
  6. MEDICON [Concomitant]
  7. CODEINE PHOSPHATE [Concomitant]
  8. VENTOLIN [Concomitant]
  9. ZOFRAN [Concomitant]
  10. OMEPRAZOLE [Concomitant]
  11. CARBOPLATIN [Concomitant]
  12. PACLITAXEL [Concomitant]

REACTIONS (12)
  - CONDITION AGGRAVATED [None]
  - COUGH [None]
  - DRUG INEFFECTIVE [None]
  - DYSPNOEA EXERTIONAL [None]
  - INTERSTITIAL LUNG DISEASE [None]
  - LUNG ADENOCARCINOMA STAGE IV [None]
  - LYMPHANGIOSIS CARCINOMATOSA [None]
  - METASTASIS [None]
  - PYREXIA [None]
  - RASH [None]
  - VOMITING [None]
  - WEIGHT DECREASED [None]
